FAERS Safety Report 7035359-2 (Version None)
Quarter: 2010Q4

REPORT INFORMATION
  Report Type: 
  Country: None (occurrence: None)
  Receive Date: 20101008
  Receipt Date: 20101008
  Transmission Date: 20110411
  Serious: Yes (Hospitalization)
  Sender: FDA-Public Use
  Company Number: KR-EISAI INC.-E2020-07665-SPO-KR

PATIENT
  Age: 67 Year
  Sex: Male
  Weight: 73 kg

DRUGS (6)
  1. ARICEPT [Suspect]
     Indication: VASCULAR DEMENTIA
     Route: 048
     Dates: start: 20090812
  2. CARBIDOPA AND LEVODOPA [Concomitant]
     Indication: PARKINSONISM
     Dosage: 275 MG DAILY
     Route: 048
     Dates: start: 20080703
  3. TORASEMIDE [Concomitant]
     Indication: HYPERTENSION
     Dosage: 2.5 MG DAILY
     Route: 048
     Dates: start: 20080703
  4. EPROSARTAN [Concomitant]
     Indication: HYPERTENSION
     Dosage: 600 MG DAILY
     Route: 048
     Dates: start: 20080703
  5. GLIMEPIRIDE [Concomitant]
     Indication: DIABETES MELLITUS
     Dosage: 2 MG DAILY
     Route: 048
     Dates: start: 20080703
  6. AMLODIPINE/VALSARTAN [Concomitant]
     Indication: HYPERTENSION
     Dosage: 5 MG DAILY
     Route: 048
     Dates: start: 20080703

REACTIONS (2)
  - APPENDICITIS [None]
  - PERITONITIS [None]
